FAERS Safety Report 5898899-5 (Version None)
Quarter: 2008Q3

REPORT INFORMATION
  Report Type: 
  Country: None (occurrence: None)
  Receive Date: 20080925
  Receipt Date: 20080911
  Transmission Date: 20090109
  Serious: Yes (Hospitalization)
  Sender: FDA-Public Use
  Company Number: US-JNJFOC-20080901702

PATIENT
  Sex: Female
  Weight: 54.89 kg

DRUGS (6)
  1. REMICADE [Suspect]
     Route: 042
  2. REMICADE [Suspect]
     Indication: COLITIS ULCERATIVE
     Route: 042
  3. ENTOCORT EC [Concomitant]
     Indication: COLITIS ULCERATIVE
  4. MESALAMINE [Concomitant]
     Indication: COLITIS ULCERATIVE
  5. PREDNISONE [Concomitant]
     Indication: COLITIS ULCERATIVE
  6. METOPROLOL TARTRATE [Concomitant]
     Indication: COLITIS ULCERATIVE

REACTIONS (6)
  - ABDOMINAL PAIN [None]
  - CHROMATURIA [None]
  - FATIGUE [None]
  - HOSPITALISATION [None]
  - PYREXIA [None]
  - SWELLING FACE [None]
